FAERS Safety Report 5719757-2 (Version None)
Quarter: 2008Q2

REPORT INFORMATION
  Report Type: 
  Country: None (occurrence: None)
  Receive Date: 20080428
  Receipt Date: 20080421
  Transmission Date: 20081010
  Serious: Yes (Hospitalization)
  Sender: FDA-Public Use
  Company Number: HR-ABBOTT-08P-216-0445265-00

PATIENT
  Age: 31 Year
  Sex: Female

DRUGS (3)
  1. REDUCTIL 10MG [Suspect]
     Indication: OBESITY
     Route: 048
     Dates: start: 20030101
  2. REDUCTIL 10MG [Suspect]
     Dates: start: 20050101
  3. APPLE CIDER VINEGAR PILL [Concomitant]
     Indication: OBESITY
     Route: 048
     Dates: start: 20030101

REACTIONS (1)
  - COLITIS ULCERATIVE [None]
